FAERS Safety Report 7819237-4 (Version None)
Quarter: 2011Q4

REPORT INFORMATION
  Report Type: 
  Country: None (occurrence: None)
  Receive Date: 20111018
  Receipt Date: 20111012
  Transmission Date: 20120403
  Serious: Yes (Hospitalization, Other)
  Sender: FDA-Public Use
  Company Number: DE-SANOFI-AVENTIS-2011SA050460

PATIENT
  Age: 29 Year
  Sex: Female
  Weight: 59 kg

DRUGS (3)
  1. ENOXAPARIN SODIUM [Suspect]
     Indication: PROPHYLAXIS
     Route: 065
     Dates: start: 20110401
  2. CELESTAN [Concomitant]
     Route: 065
     Dates: start: 20110703, end: 20110704
  3. ASCORBIC ACID [Interacting]
     Route: 065

REACTIONS (6)
  - HAEMORRHAGIC DIATHESIS [None]
  - GASTROINTESTINAL INFECTION [None]
  - DRUG INTERACTION [None]
  - MATERNAL EXPOSURE DURING PREGNANCY [None]
  - BRADYCARDIA FOETAL [None]
  - CERVICAL INCOMPETENCE [None]
